FAERS Safety Report 5407329-9 (Version None)
Quarter: 2007Q3

REPORT INFORMATION
  Report Type: 
  Country: None (occurrence: None)
  Receive Date: 20070807
  Receipt Date: 20070727
  Transmission Date: 20080115
  Serious: Yes (Other)
  Sender: FDA-Public Use
  Company Number: PHHO2007BR12582

PATIENT
  Age: 87 Year
  Sex: Female
  Weight: 50 kg

DRUGS (11)
  1. EXELON [Suspect]
     Indication: DEMENTIA ALZHEIMER'S TYPE
     Dosage: 1.5 MG, BID
     Dates: start: 20070405, end: 20070501
  2. EXELON [Suspect]
     Dosage: 3 MG, BID
     Route: 048
     Dates: start: 20070501
  3. PREXIGE [Suspect]
     Dosage: 400 MG, QD
     Route: 048
  4. ANTIINFLAMMATORY/ANTIRHEUMATIC PRODUCTS [Concomitant]
  5. VITAMIN E [Concomitant]
  6. SIMVASTATIN [Concomitant]
  7. CALCIUM CHLORIDE [Concomitant]
  8. VITAMIN B-12 [Concomitant]
  9. RANITIDINE [Concomitant]
  10. AAS [Concomitant]
  11. DIAZEPAM [Concomitant]

REACTIONS (7)
  - ARTHRITIS [None]
  - BACK PAIN [None]
  - FALL [None]
  - JOINT SWELLING [None]
  - MUSCLE RIGIDITY [None]
  - OEDEMA PERIPHERAL [None]
  - SPINAL FRACTURE [None]
